FAERS Safety Report 24048088 (Version 4)
Quarter: 2024Q4

REPORT INFORMATION
  Report Type: Report from Study
  Country: JP (occurrence: JP)
  Receive Date: 20240703
  Receipt Date: 20241202
  Transmission Date: 20250115
  Serious: Yes (Other)
  Sender: SANOFI AVENTIS
  Company Number: JP-SA-2024SA190990

PATIENT
  Age: 80 Year
  Sex: Male
  Weight: 67.3 kg

DRUGS (10)
  1. ISATUXIMAB [Suspect]
     Active Substance: ISATUXIMAB
     Indication: Plasma cell myeloma refractory
     Dosage: 10 MG/KG, QW
     Route: 041
     Dates: start: 20240221
  2. POMALIDOMIDE [Suspect]
     Active Substance: POMALIDOMIDE
     Indication: Plasma cell myeloma refractory
     Dosage: UNK
     Route: 065
     Dates: start: 20240327
  3. DEXAMETHASONE [Suspect]
     Active Substance: DEXAMETHASONE
     Indication: Plasma cell myeloma refractory
     Dosage: 4 MG, QW
     Route: 065
     Dates: start: 20240221
  4. SULFAMETHOXAZOLE\TRIMETHOPRIM [Concomitant]
     Active Substance: SULFAMETHOXAZOLE\TRIMETHOPRIM
     Indication: Prophylaxis
     Dosage: UNK
     Route: 048
     Dates: start: 20240210
  5. ACYCLOVIR SODIUM [Concomitant]
     Active Substance: ACYCLOVIR SODIUM
     Indication: Prophylaxis
     Dosage: UNK
     Route: 065
     Dates: start: 20240210
  6. DENOSUMAB [Concomitant]
     Active Substance: DENOSUMAB
     Indication: Hypercalcaemia
     Dosage: UNK
     Route: 065
     Dates: start: 20231024
  7. CALCIUM CARBONATE\CHOLECALCIFEROL\MAGNESIUM CARBONATE [Concomitant]
     Active Substance: CALCIUM CARBONATE\CHOLECALCIFEROL\MAGNESIUM CARBONATE
     Indication: Prophylaxis
     Dosage: UNK
     Route: 048
     Dates: start: 20231024
  8. ASPIRIN [Concomitant]
     Active Substance: ASPIRIN
     Indication: Cerebellar infarction
     Dosage: UNK
     Route: 065
     Dates: start: 201912
  9. CLOPIDOGREL BISULFATE [Concomitant]
     Active Substance: CLOPIDOGREL BISULFATE
     Indication: Cerebellar infarction
     Dosage: UNK
     Route: 065
     Dates: start: 201912
  10. POLARAMINE [Concomitant]
     Active Substance: DEXCHLORPHENIRAMINE MALEATE
     Indication: Prophylaxis
     Dosage: UNK UNK, QCY
     Route: 065
     Dates: start: 20240221

REACTIONS (2)
  - Anaemia [Recovered/Resolved]
  - Anaemia [Recovered/Resolved]

NARRATIVE: CASE EVENT DATE: 20240404
